FAERS Safety Report 8464998-7 (Version None)
Quarter: 2012Q2

REPORT INFORMATION
  Report Type: 
  Country: None (occurrence: None)
  Receive Date: 20120626
  Receipt Date: 20120622
  Transmission Date: 20120825
  Serious: Yes (Death, Life-Threatening, Hospitalization)
  Sender: FDA-Public Use
  Company Number: DE-B.I. PHARMACEUTICALS,INC./RIDGEFIELD-2012-DE-01495DE

PATIENT
  Sex: Male
  Weight: 76 kg

DRUGS (4)
  1. TORSEMIDE [Concomitant]
     Indication: CARDIAC FAILURE
     Dosage: 40 NR
     Route: 048
     Dates: start: 20120508
  2. CONCOR [Concomitant]
     Indication: CARDIAC FAILURE
     Dosage: 2.5 NR
     Route: 048
     Dates: start: 20120508
  3. SPIRONOLACTONE [Concomitant]
     Indication: CARDIAC FAILURE
     Dosage: 50 NR
     Route: 048
     Dates: start: 20120508
  4. PRADAXA [Suspect]
     Indication: ATRIAL FIBRILLATION
     Dosage: 220 MG
     Route: 048
     Dates: start: 20120508

REACTIONS (3)
  - PERICARDIAL HAEMORRHAGE [None]
  - RENAL IMPAIRMENT [None]
  - CARDIAC FAILURE [None]
